FAERS Safety Report 21421949 (Version 1)
Quarter: 2022Q4

REPORT INFORMATION
  Report Type: Spontaneous
  Country: US (occurrence: US)
  Receive Date: 20221007
  Receipt Date: 20221007
  Transmission Date: 20230112
  Serious: Yes (Life-Threatening, Hospitalization)
  Sender: FDA-Public Use
  Company Number: US-MYLANLABS-2022M1110425

PATIENT
  Age: 68 Year
  Sex: Female

DRUGS (10)
  1. TACROLIMUS [Suspect]
     Active Substance: TACROLIMUS
     Indication: Immunosuppressant drug therapy
     Dosage: 1/1 MG ON POD 1 AND POD 2
     Route: 060
  2. TACROLIMUS [Suspect]
     Active Substance: TACROLIMUS
     Dosage: 1/2 MG ON POD 3
     Route: 060
  3. TACROLIMUS [Suspect]
     Active Substance: TACROLIMUS
     Dosage: 2/1 MG ON POD 4 AND POD 5
     Route: 060
  4. TACROLIMUS [Suspect]
     Active Substance: TACROLIMUS
     Dosage: 2/2 MG ON POD 6
     Route: 060
  5. TACROLIMUS [Suspect]
     Active Substance: TACROLIMUS
     Dosage: 3/3 MG ON POD 7 TO POD 10
     Route: 060
  6. TACROLIMUS [Suspect]
     Active Substance: TACROLIMUS
     Dosage: 2/2 MG ON POD 11 TO POD 14
     Route: 060
  7. MYCOPHENOLATE MOFETIL [Concomitant]
     Active Substance: MYCOPHENOLATE MOFETIL
     Indication: Immunosuppressant drug therapy
     Dosage: 1 GRAM, BID
     Route: 065
  8. METHYLPREDNISOLONE [Concomitant]
     Active Substance: METHYLPREDNISOLONE
     Indication: Immunosuppressant drug therapy
     Dosage: UNK
     Route: 065
  9. MELATONIN [Concomitant]
     Active Substance: MELATONIN
     Indication: Delirium
     Dosage: 5 MILLIGRAM
     Route: 065
  10. MELATONIN [Concomitant]
     Active Substance: MELATONIN
     Dosage: 10 MILLIGRAM
     Route: 065

REACTIONS (7)
  - Encephalopathy [Recovered/Resolved]
  - Dysphagia [Recovered/Resolved]
  - Dysarthria [Recovered/Resolved]
  - Tremor [Recovered/Resolved]
  - Acute respiratory distress syndrome [Recovered/Resolved]
  - Pulmonary oedema [Recovered/Resolved]
  - Urine output decreased [Recovered/Resolved]
